FAERS Safety Report 19073109 (Version 1)
Quarter: 2021Q1

REPORT INFORMATION
  Report Type: Report from Study
  Country: BR (occurrence: BR)
  Receive Date: 20210330
  Receipt Date: 20210330
  Transmission Date: 20210420
  Serious: Yes (Hospitalization, Other)
  Sender: FDA-Public Use
  Company Number: BR-TAKEDA-BR202010439

PATIENT
  Sex: Male
  Weight: 53.06 kg

DRUGS (6)
  1. HEMO?8R [Suspect]
     Active Substance: ANTIHEMOPHILIC FACTOR, HUMAN RECOMBINANT
     Dosage: 1500 INTERNATIONAL UNIT, 3X A WEEK
     Route: 042
     Dates: start: 20200415
  2. HEMO?8R [Suspect]
     Active Substance: ANTIHEMOPHILIC FACTOR, HUMAN RECOMBINANT
     Indication: FACTOR VIII DEFICIENCY
     Dosage: 1500 INTERNATIONAL UNIT, 3X A WEEK
     Route: 042
     Dates: start: 19960214
  3. TRAMAL [Concomitant]
     Active Substance: TRAMADOL
     Indication: PROCEDURAL PAIN
  4. PARACETAMOL [Concomitant]
     Active Substance: ACETAMINOPHEN
     Indication: PROCEDURAL PAIN
  5. PARACETAMOL [Concomitant]
     Active Substance: ACETAMINOPHEN
     Indication: PROCEDURAL PAIN
  6. TRAMAL [Concomitant]
     Active Substance: TRAMADOL
     Indication: PROCEDURAL PAIN

REACTIONS (9)
  - Cartilage injury [Recovering/Resolving]
  - Brachytherapy [Recovered/Resolved]
  - Sleep-related eating disorder [Not Recovered/Not Resolved]
  - Weight increased [Recovered/Resolved]
  - Oedema [Recovered/Resolved]
  - Thrombosis [Recovered/Resolved]
  - Elbow operation [Recovered/Resolved]
  - Sleep disorder [Not Recovered/Not Resolved]
  - Product dose omission issue [Recovered/Resolved]

NARRATIVE: CASE EVENT DATE: 2018
